FAERS Safety Report 4371694-4 (Version None)
Quarter: 2004Q2

REPORT INFORMATION
  Report Type: 
  Country: None (occurrence: None)
  Receive Date: 20040602
  Receipt Date: 20040525
  Transmission Date: 20050107
  Serious: Yes (Death)
  Sender: FDA-Public Use
  Company Number: IE-JNJFOC-20040505717

PATIENT
  Age: 54 Year
  Sex: Female

DRUGS (8)
  1. RISPERDAL [Suspect]
     Indication: DEPRESSION
     Dosage: 3 MG, IN 1 DAY, ORAL
     Route: 048
  2. SERTRALINE HCL [Concomitant]
  3. ALPRAZOLAM [Concomitant]
  4. ZOLPIDEM [Concomitant]
  5. DIGOXIN [Concomitant]
  6. WARFARIN SODIUM [Concomitant]
  7. PRUMIL [Concomitant]
  8. SALOMOL [Concomitant]

REACTIONS (2)
  - SUDDEN DEATH [None]
  - VENTRICULAR FIBRILLATION [None]
